FAERS Safety Report 10792015 (Version 1)
Quarter: 2015Q1

REPORT INFORMATION
  Report Type: Spontaneous
  Country: US (occurrence: US)
  Receive Date: 20150213
  Receipt Date: 20150213
  Transmission Date: 20150721
  Serious: No
  Sender: FDA-Public Use
  Company Number: US-GLAXOSMITHKLINE-A1079450A

PATIENT

DRUGS (2)
  1. BECONASE AQ [Suspect]
     Active Substance: BECLOMETHASONE DIPROPIONATE MONOHYDRATE
     Indication: RHINITIS ALLERGIC
     Route: 045
     Dates: start: 1999
  2. BLOOD THINNER [Concomitant]
     Active Substance: UNSPECIFIED INGREDIENT

REACTIONS (4)
  - Nasal dryness [Unknown]
  - Nasal discomfort [Recovering/Resolving]
  - Malaise [Unknown]
  - Product quality issue [Unknown]

NARRATIVE: CASE EVENT DATE: 201406
